FAERS Safety Report 25563213 (Version 5)
Quarter: 2025Q3

REPORT INFORMATION
  Report Type: Report from Study
  Country: US (occurrence: US)
  Receive Date: 20250716
  Receipt Date: 20250909
  Transmission Date: 20251021
  Serious: Yes (Death, Hospitalization, Other)
  Sender: INSMED
  Company Number: US-INSMED, INC.-2025-02620-US

PATIENT
  Sex: Female
  Weight: 40.82 kg

DRUGS (1)
  1. ARIKAYCE [Suspect]
     Active Substance: AMIKACIN
     Indication: Mycobacterium avium complex infection
     Dosage: 590 MILLIGRAM, QD
     Route: 055
     Dates: start: 20250703, end: 20250714

REACTIONS (12)
  - Death [Fatal]
  - Intensive care [Unknown]
  - Oxygen saturation decreased [Recovered/Resolved]
  - Oxygen saturation decreased [Unknown]
  - Lung disorder [Unknown]
  - Dyspnoea [Unknown]
  - Heart rate decreased [Recovered/Resolved]
  - Nausea [Unknown]
  - Haemoptysis [Recovered/Resolved]
  - Adverse event [Unknown]
  - General physical health deterioration [Unknown]
  - Underdose [Unknown]

NARRATIVE: CASE EVENT DATE: 20250101
